FAERS Safety Report 6988582-7 (Version None)
Quarter: 2010Q3

REPORT INFORMATION
  Report Type: 
  Country: None (occurrence: None)
  Receive Date: 20100827
  Receipt Date: 20100528
  Transmission Date: 20110219
  Serious: Yes (Hospitalization, Other)
  Sender: FDA-Public Use
  Company Number: 012823

PATIENT
  Sex: Male

DRUGS (3)
  1. LACOSAMIDE [Suspect]
     Indication: CONVULSION
  2. KEPPRA [Suspect]
     Dosage: 1500 MG BID, 2000 MG BID
  3. VITAMIN B6 [Concomitant]

REACTIONS (2)
  - CONVULSION [None]
  - SUICIDAL IDEATION [None]
